FAERS Safety Report 17647833 (Version 1)
Quarter: 2020Q2

REPORT INFORMATION
  Report Type: Report from Study
  Country: CO (occurrence: CO)
  Receive Date: 20200408
  Receipt Date: 20200408
  Transmission Date: 20200713
  Serious: Yes (Hospitalization)
  Sender: FDA-Public Use
  Company Number: PHHY2019CO129601

PATIENT
  Sex: Female
  Weight: 90 kg

DRUGS (3)
  1. FEMARA [Suspect]
     Active Substance: LETROZOLE
     Indication: BREAST CANCER
     Dosage: 2.5 MG, QD
     Route: 048
     Dates: start: 20190121
  2. LEVOTHYROXINE. [Concomitant]
     Active Substance: LEVOTHYROXINE
     Indication: THYROID DISORDER
     Dosage: UNK
     Route: 065
  3. KISQALI [Suspect]
     Active Substance: RIBOCICLIB
     Indication: BREAST CANCER METASTATIC
     Dosage: 600 MG (3 TABLETS OF 200 MG), QD
     Route: 048
     Dates: start: 20190121

REACTIONS (8)
  - Procedural complication [Unknown]
  - Influenza [Unknown]
  - Throat irritation [Unknown]
  - Productive cough [Unknown]
  - Pleural thickening [Unknown]
  - Pneumonia [Unknown]
  - Lung disorder [Unknown]
  - Pyrexia [Recovered/Resolved]
